FAERS Safety Report 4347010-0 (Version None)
Quarter: 2004Q1

REPORT INFORMATION
  Report Type: 
  Country: None (occurrence: None)
  Receive Date: 20040325
  Receipt Date: 20040203
  Transmission Date: 20041129
  Serious: No
  Sender: FDA-Public Use
  Company Number: USA040258404

PATIENT
  Age: 66 Year
  Sex: Female
  Weight: 57 kg

DRUGS (11)
  1. FORTEO [Suspect]
     Indication: OSTEOPOROSIS
     Dosage: 20 UG/1 DAY
     Dates: start: 20031202
  2. CALCIUM 600 WITH D + ZINC [Concomitant]
  3. LABETALOL HCL [Concomitant]
  4. DETROL LA (TOLTERODINE L-TARTRATE) [Concomitant]
  5. PRAVACHOL [Concomitant]
  6. LEVOXYL [Concomitant]
  7. MAALOX [Concomitant]
  8. TYLENOL [Concomitant]
  9. METROLOTION (METRONIDAZOLE) [Concomitant]
  10. RANITIDINE HYDROCHLORIDE [Concomitant]
  11. MULTIVITAMINS NOS (MULTIVITAMINS NOS) [Concomitant]

REACTIONS (2)
  - INJECTION SITE HAEMORRHAGE [None]
  - NAUSEA [None]
